FAERS Safety Report 9344299 (Version 1)
Quarter: 2013Q2

REPORT INFORMATION
  Report Type: Spontaneous
  Country: US (occurrence: None)
  Receive Date: 20130611
  Receipt Date: 20130611
  Transmission Date: 20140414
  Serious: Yes (Death)
  Sender: FDA-Public Use
  Company Number: None

PATIENT
  Age: 67 Year
  Sex: Male

DRUGS (1)
  1. TARCEVA [Suspect]
     Dosage: 100MG  DAILY  PO?02/29/2013 TO 03/25/2013
     Route: 048
     Dates: end: 20130325

REACTIONS (1)
  - Pancreatic carcinoma [None]
